FAERS Safety Report 8073420-4 (Version None)
Quarter: 2011Q4

REPORT INFORMATION
  Report Type: 
  Country: None (occurrence: None)
  Receive Date: 20111221
  Receipt Date: 20110325
  Transmission Date: 20120403
  Serious: Yes (Other)
  Sender: FDA-Public Use
  Company Number: PHHY2011US25530

PATIENT
  Age: 72 Year
  Sex: Male
  Weight: 41.7 kg

DRUGS (1)
  1. EXJADE [Suspect]
     Indication: MULTIPLE MYELOMA
     Dosage: 1500 MG, QD, ORAL
     Route: 048
     Dates: start: 20071025

REACTIONS (1)
  - BLOOD CREATININE INCREASED [None]
